FAERS Safety Report 7767587-2 (Version None)
Quarter: 2011Q3

REPORT INFORMATION
  Report Type: 
  Country: None (occurrence: None)
  Receive Date: 20110922
  Receipt Date: 20110913
  Transmission Date: 20111222
  Serious: Yes (Other)
  Sender: FDA-Public Use
  Company Number: US-BAYER-2011-015851

PATIENT
  Age: 24 Year
  Sex: Female
  Weight: 79.365 kg

DRUGS (5)
  1. FLOVENT [Concomitant]
     Indication: ASTHMA
     Dosage: UNK
     Dates: start: 20091001, end: 20101201
  2. BUSPAR [Concomitant]
     Dosage: UNK
     Dates: start: 20100201, end: 20100210
  3. DARVOCET [Concomitant]
     Indication: BACK DISORDER
     Dosage: UNK
     Dates: start: 20080101
  4. YAZ [Suspect]
     Dosage: UNK
     Dates: start: 20091229, end: 20100201
  5. VENTOLIN HFA [Concomitant]
     Indication: ASTHMA
     Dosage: UNK
     Dates: start: 20091001, end: 20101201

REACTIONS (10)
  - MENTAL DISORDER [None]
  - ANXIETY [None]
  - HEART INJURY [None]
  - HEART RATE IRREGULAR [None]
  - PAIN [None]
  - INJURY [None]
  - ARRHYTHMIA [None]
  - BIPOLAR DISORDER [None]
  - DEPRESSION [None]
  - CARDIAC DISORDER [None]
